FAERS Safety Report 4584179-7 (Version None)
Quarter: 2005Q1

REPORT INFORMATION
  Report Type: 
  Country: None (occurrence: None)
  Receive Date: 20050125
  Receipt Date: 20041029
  Transmission Date: 20050727
  Serious: No
  Sender: FDA-Public Use
  Company Number: USA041082652

PATIENT
  Sex: Female
  Weight: 51 kg

DRUGS (1)
  1. FORTEO [Suspect]
     Indication: OSTEOPOROSIS
     Dosage: 20 UG DAY

REACTIONS (3)
  - ACCIDENTAL OVERDOSE [None]
  - INJECTION SITE HAEMORRHAGE [None]
  - MEDICATION ERROR [None]
